FAERS Safety Report 4336365-9 (Version None)
Quarter: 2004Q2

REPORT INFORMATION
  Report Type: 
  Country: None (occurrence: None)
  Receive Date: 20040409
  Receipt Date: 20040409
  Transmission Date: 20050107
  Serious: Yes (Other)
  Sender: FDA-Public Use
  Company Number: None

PATIENT
  Age: 41 Year
  Sex: Female
  Weight: 56.6996 kg

DRUGS (7)
  1. GAMMAGARD [Suspect]
     Indication: IMMUNODEFICIENCY
     Dosage: 20  GRAMS EVERY 2 WE INTRAVENOUS
     Route: 042
     Dates: start: 19900101, end: 20040408
  2. VIOXX [Suspect]
     Indication: BACK INJURY
     Dosage: 50MG Q24H ORAL
     Route: 048
     Dates: start: 20040228, end: 20040408
  3. MODURETIC 5-50 [Concomitant]
  4. ALBUTEROL [Concomitant]
  5. MAXAIR [Concomitant]
  6. SKELAXIN [Concomitant]
  7. ULTRACET [Concomitant]

REACTIONS (1)
  - HEART RATE INCREASED [None]
